FAERS Safety Report 9061798 (Version 2)
Quarter: 2013Q1

REPORT INFORMATION
  Report Type: Spontaneous
  Country: US (occurrence: None)
  Receive Date: 20130122
  Receipt Date: 20130225
  Transmission Date: 20140127
  Serious: Yes (Hospitalization)
  Sender: FDA-Public Use
  Company Number: UTC-027949

PATIENT
  Age: 61 Year
  Sex: Male

DRUGS (1)
  1. TYVASO [Suspect]
     Indication: PRODUCT USED FOR UNKNOWN INDICATION
     Route: 055
     Dates: start: 201301

REACTIONS (4)
  - Cerebrovascular accident [None]
  - Local swelling [None]
  - Hemiparesis [None]
  - VIIth nerve paralysis [None]
